APPROVED DRUG PRODUCT: IBSRELA
Active Ingredient: TENAPANOR HYDROCHLORIDE
Strength: EQ 50MG BASE
Dosage Form/Route: TABLET;ORAL
Application: N211801 | Product #001
Applicant: ARDELYX INC
Approved: Sep 12, 2019 | RLD: Yes | RS: Yes | Type: RX

PATENTS:
Patent 9006281 | Expires: May 2, 2030
Patent 9408840 | Expires: Dec 30, 2029
Patent 8969377 | Expires: Dec 30, 2029
Patent 12539299 | Expires: Nov 26, 2042
Patent 12016856 | Expires: Dec 30, 2029
Patent 8541448 | Expires: Aug 1, 2033